FAERS Safety Report 4650830-6 (Version None)
Quarter: 2005Q2

REPORT INFORMATION
  Report Type: 
  Country: None (occurrence: None)
  Receive Date: 20050429
  Receipt Date: 20050429
  Transmission Date: 20051028
  Serious: Yes (Hospitalization)
  Sender: FDA-Public Use
  Company Number: None

PATIENT
  Age: 21 Year
  Sex: Female

DRUGS (2)
  1. DEMEROL [Suspect]
  2. METHYLPREDNISOLONE [Suspect]

REACTIONS (3)
  - DYSTONIA [None]
  - RASH [None]
  - TREMOR [None]
